FAERS Safety Report 19865274 (Version 1)
Quarter: 2021Q3

REPORT INFORMATION
  Report Type: Report from Study
  Country: US (occurrence: US)
  Receive Date: 20210922
  Receipt Date: 20210922
  Transmission Date: 20211014
  Serious: No
  Sender: FDA-Public Use
  Company Number: NVSC2021US209771

PATIENT
  Sex: Female

DRUGS (1)
  1. COSENTYX [Suspect]
     Active Substance: SECUKINUMAB
     Indication: PSORIATIC ARTHROPATHY
     Dosage: 300 MG (300 MG Q WEEKLY X 5 WEEKS THEN 300MG Q 4 WEEKS (BENEATH THE SKIN, USUALLY VIA INJECTION)
     Route: 058
     Dates: start: 202108

REACTIONS (1)
  - Therapeutic product effect incomplete [Unknown]
